FAERS Safety Report 5840075-6 (Version None)
Quarter: 2008Q3

REPORT INFORMATION
  Report Type: 
  Country: None (occurrence: None)
  Receive Date: 20080811
  Receipt Date: 20080731
  Transmission Date: 20090109
  Serious: Yes (Congenital Anomaly)
  Sender: FDA-Public Use
  Company Number: A0699514A

PATIENT
  Sex: Female
  Weight: 4.6 kg

DRUGS (14)
  1. PAXIL [Suspect]
     Indication: BIPOLAR DISORDER
     Dosage: 40MG PER DAY
     Dates: start: 20010101, end: 20040601
  2. PAXIL CR [Suspect]
     Indication: BIPOLAR DISORDER
     Dosage: 40MG PER DAY
     Dates: start: 20010101, end: 20070101
  3. METFORMIN HCL [Concomitant]
  4. DOXYCYCLINE HCL [Concomitant]
  5. VITAMIN TAB [Concomitant]
     Dates: start: 20040501, end: 20050101
  6. ADVAIR DISKUS 100/50 [Concomitant]
     Indication: ASTHMA
     Dates: start: 19960101
  7. ALBUTEROL [Concomitant]
     Indication: ASTHMA
     Dates: start: 19960101
  8. ALDOMET [Concomitant]
     Dosage: 500MG TWICE PER DAY
     Dates: start: 20050101
  9. GLUCOPHAGE [Concomitant]
     Indication: HORMONE REPLACEMENT THERAPY
     Dates: start: 20040601, end: 20040101
  10. PROGESTERONE [Concomitant]
     Indication: HORMONE REPLACEMENT THERAPY
     Dates: start: 20040501, end: 20060901
  11. THORAZINE [Concomitant]
     Indication: BIPOLAR DISORDER
     Dates: start: 19980101, end: 20040101
  12. ZOLOFT [Concomitant]
     Indication: BIPOLAR DISORDER
     Dosage: 150MG PER DAY
     Dates: start: 20031101, end: 20060101
  13. ZYPREXA [Concomitant]
     Indication: SLEEP DISORDER
     Dates: start: 19980101, end: 20040101
  14. EFFEXOR [Concomitant]
     Indication: BIPOLAR DISORDER
     Dates: start: 19980101, end: 20040101

REACTIONS (7)
  - AORTIC VALVE STENOSIS [None]
  - COARCTATION OF THE AORTA [None]
  - DILATATION VENTRICULAR [None]
  - DRUG EXPOSURE DURING PREGNANCY [None]
  - MITRAL VALVE STENOSIS [None]
  - MULTIPLE CONGENITAL ABNORMALITIES [None]
  - PATENT DUCTUS ARTERIOSUS [None]
